FAERS Safety Report 8284356-8 (Version None)
Quarter: 2012Q2

REPORT INFORMATION
  Report Type: 
  Country: None (occurrence: None)
  Receive Date: 20120413
  Receipt Date: 20110803
  Transmission Date: 20120825
  Serious: Yes (Other)
  Sender: FDA-Public Use
  Company Number: US-ASTRAZENECA-2011SE46427

PATIENT
  Age: 69 Year
  Sex: Female
  Weight: 58.5 kg

DRUGS (9)
  1. NEXIUM [Suspect]
     Route: 048
  2. SYNTHROID [Concomitant]
  3. NEXIUM [Suspect]
     Route: 048
  4. CALCIUM CARBONATE [Concomitant]
  5. NEXIUM [Suspect]
     Indication: GASTROOESOPHAGEAL REFLUX DISEASE
     Route: 048
     Dates: start: 20050101
  6. NEXIUM [Suspect]
     Indication: HIATUS HERNIA
     Route: 048
     Dates: start: 20050101
  7. TOPROL-XL [Concomitant]
  8. FOSAMAX [Concomitant]
  9. NORVASC [Concomitant]

REACTIONS (2)
  - TIBIA FRACTURE [None]
  - OFF LABEL USE [None]
